FAERS Safety Report 26149131 (Version 1)
Quarter: 2025Q4

REPORT INFORMATION
  Report Type: Spontaneous
  Country: EU (occurrence: EU)
  Receive Date: 20251212
  Receipt Date: 20251212
  Transmission Date: 20260118
  Serious: Yes (Hospitalization)
  Sender: RANBAXY
  Company Number: EU-AFSSAPS-GR2025001345

PATIENT
  Age: 60 Year
  Sex: Female
  Weight: 90 kg

DRUGS (2)
  1. VENLAFAXINE [Suspect]
     Active Substance: VENLAFAXINE HYDROCHLORIDE
     Indication: Intentional overdose
     Dosage: 37.5 MILLIGRAM, IN TOTAL
     Route: 048
     Dates: start: 20250818, end: 20250818
  2. TRIMEPRAZINE [Concomitant]
     Active Substance: TRIMEPRAZINE
     Indication: Intentional overdose
     Dosage: 10 DOSAGE FORM, IN TOTAL
     Route: 048
     Dates: start: 20250818, end: 20250818

REACTIONS (4)
  - Somnolence [Recovered/Resolved]
  - Hypotension [Recovered/Resolved]
  - Respiratory failure [Recovered/Resolved]
  - Poisoning deliberate [Recovered/Resolved]

NARRATIVE: CASE EVENT DATE: 20250818
